FAERS Safety Report 23941753 (Version 1)
Quarter: 2024Q2

REPORT INFORMATION
  Report Type: Spontaneous
  Country: CZ (occurrence: CZ)
  Receive Date: 20240605
  Receipt Date: 20240605
  Transmission Date: 20240716
  Serious: Yes (Hospitalization, Other)
  Sender: FDA-Public Use
  Company Number: CZ-TEVA-VS-3201324

PATIENT
  Age: 58 Year
  Sex: Female
  Weight: 55 kg

DRUGS (5)
  1. SUMATRIPTAN [Suspect]
     Active Substance: SUMATRIPTAN
     Indication: Product used for unknown indication
     Dosage: 100 MILLIGRAM, QD (SUMATRIPTAN 50)
     Route: 065
     Dates: start: 2020
  2. TOPIRAMATE [Suspect]
     Active Substance: TOPIRAMATE
     Indication: Migraine
     Dosage: 50 MILLIGRAM, QD
     Route: 065
     Dates: start: 2010
  3. VALPROATE [Suspect]
     Active Substance: VALPROIC ACID
     Indication: Migraine
     Dosage: 300 MILLIGRAM, QD
     Route: 065
     Dates: start: 2017
  4. IBUPROFEN [Concomitant]
     Active Substance: IBUPROFEN
     Indication: Product used for unknown indication
     Dosage: 400 MILLIGRAM
     Route: 065
     Dates: start: 2020
  5. AMITRIPTYLINE [Concomitant]
     Active Substance: AMITRIPTYLINE
     Indication: Product used for unknown indication
     Dosage: 25 MILLIGRAM (TOOK FOR A YEAR, LOSS OF EFFECT)
     Route: 065
     Dates: start: 2015

REACTIONS (5)
  - Amnesia [Unknown]
  - Medication overuse headache [Unknown]
  - Disturbance in attention [Unknown]
  - Language disorder [Unknown]
  - Alopecia [Unknown]
